FAERS Safety Report 13071583 (Version 1)
Quarter: 2016Q4

REPORT INFORMATION
  Report Type: Spontaneous
  Country: US (occurrence: US)
  Receive Date: 20161228
  Receipt Date: 20161228
  Transmission Date: 20170207
  Serious: Yes (Death)
  Sender: FDA-Public Use
  Company Number: None

PATIENT
  Age: 55 Year
  Sex: Female

DRUGS (7)
  1. ATIVAN [Concomitant]
     Active Substance: LORAZEPAM
  2. POTASSIMIN [Concomitant]
  3. NEUPOGEN [Suspect]
     Active Substance: FILGRASTIM
     Indication: NEUTROPENIA
     Dosage: 1 SYRINGE 4X PER CYCLE SQ
     Route: 058
     Dates: start: 20161026, end: 20161228
  4. TRAMADOL. [Concomitant]
     Active Substance: TRAMADOL
  5. NEUPOGEN [Suspect]
     Active Substance: FILGRASTIM
     Indication: NEUTROPENIA
     Dosage: 1 SYRINGE 4X PER CYCLE SQ
     Route: 058
     Dates: start: 20161026, end: 20161228
  6. PRILOSEC [Concomitant]
     Active Substance: OMEPRAZOLE MAGNESIUM
  7. HALAVEN [Concomitant]
     Active Substance: ERIBULIN MESYLATE

REACTIONS (1)
  - Death [None]

NARRATIVE: CASE EVENT DATE: 20161228
